FAERS Safety Report 8262007-6 (Version None)
Quarter: 2012Q2

REPORT INFORMATION
  Report Type: 
  Country: None (occurrence: None)
  Receive Date: 20120405
  Receipt Date: 20120330
  Transmission Date: 20120825
  Serious: Yes (Death)
  Sender: FDA-Public Use
  Company Number: US-CELGENEUS-163-21880-12040070

PATIENT
  Sex: Female

DRUGS (10)
  1. OMEPRAZOLE [Concomitant]
     Route: 065
  2. LOVASTATIN [Concomitant]
     Route: 065
  3. REVLIMID [Suspect]
     Indication: MULTIPLE MYELOMA
     Dosage: 10 MILLIGRAM
     Route: 048
     Dates: start: 20110401, end: 20110601
  4. REVLIMID [Suspect]
     Dosage: 10 MILLIGRAM
     Route: 048
     Dates: start: 20110901, end: 20111001
  5. ALPRAZOLAM [Concomitant]
     Route: 065
  6. LATANOPROST [Concomitant]
     Route: 065
  7. K-TAB [Concomitant]
     Route: 065
  8. HYOSCYAMINE [Concomitant]
     Route: 065
  9. OXYCODONE HCL [Concomitant]
     Route: 065
  10. GABAPENTIN [Concomitant]
     Route: 065

REACTIONS (1)
  - DEATH [None]
